FAERS Safety Report 11970511 (Version 1)
Quarter: 2016Q1

REPORT INFORMATION
  Report Type: Spontaneous
  Country: US (occurrence: None)
  Receive Date: 20160127
  Receipt Date: 20160127
  Transmission Date: 20160526
  Serious: Yes (Other)
  Sender: FDA-Public Use
  Company Number: None

PATIENT
  Age: 63 Year
  Sex: Female
  Weight: 63.5 kg

DRUGS (2)
  1. PROLIA [Suspect]
     Active Substance: DENOSUMAB
     Indication: OSTEOPOROSIS
     Dosage: 60 MG EVERY 6 MONTHS
     Route: 058
     Dates: start: 20160105
  2. SYNTHORID 112 MCG [Concomitant]

REACTIONS (5)
  - Oesophageal pain [None]
  - Abdominal distension [None]
  - Gastrooesophageal reflux disease [None]
  - Headache [None]
  - Malaise [None]

NARRATIVE: CASE EVENT DATE: 20160107
